FAERS Safety Report 6347482-6 (Version None)
Quarter: 2009Q3

REPORT INFORMATION
  Report Type: 
  Country: None (occurrence: None)
  Receive Date: 20090910
  Receipt Date: 20090903
  Transmission Date: 20100115
  Serious: Yes (Disabling)
  Sender: FDA-Public Use
  Company Number: US-ELI_LILLY_AND_COMPANY-US200909001005

PATIENT
  Sex: Female

DRUGS (12)
  1. HUMALOG [Suspect]
     Dosage: UNK, AS NEEDED
     Dates: start: 19960101
  2. HUMALOG [Suspect]
  3. HUMULIN 70/30 [Suspect]
     Indication: TYPE 1 DIABETES MELLITUS
     Dosage: UNK, UNK
     Dates: start: 19780101, end: 19800101
  4. LANTUS [Concomitant]
     Dosage: 100 U, UNK
     Dates: start: 19800101
  5. NEURONTIN [Concomitant]
  6. SYNTHROID [Concomitant]
  7. EFFEXOR [Concomitant]
  8. ABILIFY [Concomitant]
  9. RAMIPRIL [Concomitant]
     Indication: RENAL DISORDER
  10. KLONOPIN [Concomitant]
  11. BENADRYL [Concomitant]
     Indication: INSOMNIA
  12. VICODIN [Concomitant]
     Indication: PAIN

REACTIONS (10)
  - BACK DISORDER [None]
  - BLOOD GLUCOSE INCREASED [None]
  - DRUG DISPENSING ERROR [None]
  - DRUG INEFFECTIVE [None]
  - DYSSTASIA [None]
  - GAIT DISTURBANCE [None]
  - HEADACHE [None]
  - INSOMNIA [None]
  - PAIN [None]
  - RENAL DISORDER [None]
